FAERS Safety Report 19200055 (Version 3)
Quarter: 2021Q4

REPORT INFORMATION
  Report Type: Report from Study
  Country: JP (occurrence: JP)
  Receive Date: 20210429
  Receipt Date: 20211025
  Transmission Date: 20220303
  Serious: Yes (Hospitalization)
  Sender: FDA-Public Use
  Company Number: JP-JNJFOC-20210452388

PATIENT
  Age: 74 Year
  Sex: Male
  Weight: 64 kg

DRUGS (11)
  1. APALUTAMIDE [Suspect]
     Active Substance: APALUTAMIDE
     Indication: Prostate cancer metastatic
     Route: 048
     Dates: start: 20160824, end: 20210421
  2. ABIRATERONE ACETATE [Suspect]
     Active Substance: ABIRATERONE ACETATE
     Indication: Prostate cancer metastatic
     Route: 048
     Dates: start: 20160824, end: 20210421
  3. PREDNISOLONE [Suspect]
     Active Substance: PREDNISOLONE
     Indication: Prostate cancer metastatic
     Route: 048
     Dates: start: 20160824, end: 20210421
  4. LANSOPRAZOLE [Concomitant]
     Active Substance: LANSOPRAZOLE
     Indication: Prophylaxis against gastrointestinal ulcer
     Route: 048
     Dates: start: 20200706
  5. SILODOSIN [Concomitant]
     Active Substance: SILODOSIN
     Indication: Dysuria
     Route: 048
     Dates: start: 20200706
  6. BUTYRIC ACID [Concomitant]
     Active Substance: BUTYRIC ACID
     Indication: Diarrhoea
     Route: 048
     Dates: start: 20200714
  7. ASPIRIN [Concomitant]
     Active Substance: ASPIRIN
     Indication: Prophylaxis
     Route: 048
     Dates: start: 20200930
  8. ROSUVASTATIN CALCIUM [Concomitant]
     Active Substance: ROSUVASTATIN CALCIUM
     Indication: Prophylaxis
     Route: 048
     Dates: start: 20201124
  9. ACETAMINOPHEN [Concomitant]
     Active Substance: ACETAMINOPHEN
     Indication: Abdominal pain
     Dates: start: 20210415
  10. LOXOPROFEN [Concomitant]
     Active Substance: LOXOPROFEN
     Indication: Abdominal pain
     Dates: start: 20210416, end: 20210427
  11. LOXOPROFEN [Concomitant]
     Active Substance: LOXOPROFEN
     Indication: Intervertebral disc protrusion
     Dates: start: 20170628

REACTIONS (1)
  - Aortic dissection [Recovered/Resolved]

NARRATIVE: CASE EVENT DATE: 20210415
